FAERS Safety Report 8236319-6 (Version None)
Quarter: 2012Q1

REPORT INFORMATION
  Report Type: 
  Country: None (occurrence: None)
  Receive Date: 20120327
  Receipt Date: 20120322
  Transmission Date: 20120608
  Serious: Yes (Hospitalization)
  Sender: FDA-Public Use
  Company Number: KR-JNJFOC-20100607129

PATIENT
  Sex: Female
  Weight: 53.8 kg

DRUGS (12)
  1. NABUMETONE [Concomitant]
     Route: 048
     Dates: start: 20050228
  2. AMLODIPINE [Concomitant]
     Route: 048
     Dates: start: 20081009
  3. REBAMIPIDE [Concomitant]
     Route: 048
     Dates: start: 20090915
  4. DEFLAZACORT [Concomitant]
     Route: 048
     Dates: start: 20090915
  5. METHOTREXATE [Concomitant]
     Route: 048
     Dates: start: 20080723
  6. GOLIMUMAB [Suspect]
     Route: 058
     Dates: start: 20060824
  7. GOLIMUMAB [Suspect]
     Route: 058
     Dates: start: 20100402
  8. GOLIMUMAB [Suspect]
     Indication: RHEUMATOID ARTHRITIS
     Route: 058
     Dates: start: 20100621
  9. METHOTREXATE [Suspect]
     Indication: RHEUMATOID ARTHRITIS
     Route: 048
     Dates: start: 20060802, end: 20060823
  10. METHOTREXATE [Suspect]
     Route: 048
     Dates: start: 20060830, end: 20080716
  11. FOLIC ACID [Concomitant]
     Route: 048
     Dates: start: 20050228
  12. FOSAMAX PLUS D [Concomitant]
     Route: 048
     Dates: start: 20090401

REACTIONS (4)
  - DEAFNESS NEUROSENSORY [None]
  - TINNITUS [None]
  - DEAFNESS UNILATERAL [None]
  - NEPHROLITHIASIS [None]
